FAERS Safety Report 9393380 (Version 2)
Quarter: 2013Q3

REPORT INFORMATION
  Report Type: Spontaneous
  Country: CO (occurrence: CO)
  Receive Date: 20130710
  Receipt Date: 20130718
  Transmission Date: 20140515
  Serious: Yes (Hospitalization)
  Sender: FDA-Public Use
  Company Number: CO-AMGEN-COLSP2013046371

PATIENT
  Age: 72 Year
  Sex: Female

DRUGS (5)
  1. ENBREL [Suspect]
     Indication: RHEUMATOID ARTHRITIS
     Dosage: 50 MG, WEEKLY
     Route: 058
     Dates: start: 201210, end: 201301
  2. ACETAMINOPHEN [Concomitant]
     Dosage: UNK
  3. CHLOROQUINE [Concomitant]
     Dosage: UNK
     Route: 065
  4. FOLIC ACID [Concomitant]
     Dosage: UNK
     Route: 065
  5. DICLOFENAC [Concomitant]
     Dosage: UNK

REACTIONS (3)
  - Joint dislocation [Not Recovered/Not Resolved]
  - Fall [Recovered/Resolved with Sequelae]
  - Femur fracture [Not Recovered/Not Resolved]
